FAERS Safety Report 20549813 (Version 3)
Quarter: 2022Q1

REPORT INFORMATION
  Report Type: Spontaneous
  Country: US (occurrence: US)
  Receive Date: 20220304
  Receipt Date: 20220330
  Transmission Date: 20220424
  Serious: No
  Sender: FDA-Public Use
  Company Number: US-UNITED THERAPEUTICS-UNT-2022-003736

PATIENT
  Age: 81 Year
  Sex: Female
  Weight: 63.039 kg

DRUGS (7)
  1. TYVASO [Suspect]
     Active Substance: TREPROSTINIL
     Indication: Pulmonary arterial hypertension
     Dosage: UNK
     Dates: start: 20211230
  2. TYVASO [Suspect]
     Active Substance: TREPROSTINIL
     Dosage: 18-72 ?G, QID
  3. TYVASO [Suspect]
     Active Substance: TREPROSTINIL
     Dosage: UNK
  4. TYVASO [Suspect]
     Active Substance: TREPROSTINIL
     Dosage: 42 ?G (PER TREATMENT SESSION)
  5. ADEMPAS [Concomitant]
     Active Substance: RIOCIGUAT
     Indication: Product used for unknown indication
     Dosage: UNK
     Route: 065
  6. ELIQUIS [Concomitant]
     Active Substance: APIXABAN
     Indication: Product used for unknown indication
     Dosage: UNK
     Route: 065
  7. TRELEGY ELLIPTA [Concomitant]
     Active Substance: FLUTICASONE FUROATE\UMECLIDINIUM BROMIDE\VILANTEROL TRIFENATATE
     Indication: Product used for unknown indication
     Dosage: UNK
     Route: 065

REACTIONS (8)
  - Productive cough [Not Recovered/Not Resolved]
  - Dizziness [Unknown]
  - Chronic obstructive pulmonary disease [Unknown]
  - Emphysema [Unknown]
  - Poor quality sleep [Unknown]
  - Cough [Unknown]
  - Throat irritation [Unknown]
  - Diarrhoea [Unknown]

NARRATIVE: CASE EVENT DATE: 20220214
